FAERS Safety Report 5719469-5 (Version None)
Quarter: 2008Q2

REPORT INFORMATION
  Report Type: 
  Country: None (occurrence: None)
  Receive Date: 20080428
  Receipt Date: 20080415
  Transmission Date: 20081010
  Serious: Yes (Hospitalization)
  Sender: FDA-Public Use
  Company Number: FR-AMGEN-US261654

PATIENT
  Sex: Male

DRUGS (8)
  1. ENBREL [Suspect]
     Indication: PSORIASIS
     Route: 058
     Dates: start: 20070701, end: 20070914
  2. VERAPAMIL [Concomitant]
     Indication: HYPERTENSION
     Dosage: UNKNOWN
     Route: 048
  3. RIFINAH [Concomitant]
     Indication: ANTIBIOTIC PROPHYLAXIS
     Dosage: UNKNOWN
     Route: 048
     Dates: start: 20070601, end: 20070822
  4. EFFERALGAN CODEINE [Concomitant]
     Indication: PAIN
     Dosage: UNKNOWN
     Route: 048
  5. OXAZEPAM [Concomitant]
     Indication: ANXIETY
     Dosage: UNKNOWN
     Route: 048
  6. LAROXYL [Concomitant]
     Indication: ANXIETY
     Dosage: UNKNOWN
     Route: 048
  7. CANDESARTAN CILEXETIL/HYDROCHLOROTHIAZIDE [Concomitant]
     Indication: HYPERTENSION
     Dosage: UNKNOWN
     Route: 048
  8. OMEPRAZOLE [Concomitant]
     Indication: ABDOMINAL PAIN UPPER
     Dosage: UNKNOWN
     Route: 048

REACTIONS (5)
  - ASCITES [None]
  - CHOLECYSTITIS CHRONIC [None]
  - CYTOLYTIC HEPATITIS [None]
  - PANCREATIC CARCINOMA [None]
  - POST PROCEDURAL COMPLICATION [None]
